APPROVED DRUG PRODUCT: DOXERCALCIFEROL
Active Ingredient: DOXERCALCIFEROL
Strength: 10MCG/5ML (2MCG/ML)
Dosage Form/Route: INJECTABLE;INJECTION
Application: N208614 | Product #002
Applicant: HOSPIRA INC
Approved: Jul 24, 2018 | RLD: Yes | RS: No | Type: DISCN